FAERS Safety Report 5017363-9 (Version None)
Quarter: 2006Q2

REPORT INFORMATION
  Report Type: 
  Country: None (occurrence: None)
  Receive Date: 20060414
  Receipt Date: 20060301
  Transmission Date: 20061013
  Serious: No
  Sender: FDA-Public Use
  Company Number: 2006SP001019

PATIENT
  Age: 54 Year
  Sex: Female
  Weight: 59.8748 kg

DRUGS (7)
  1. LUNESTA [Suspect]
     Indication: INSOMNIA
     Dosage: 2 MG; ORAL
     Route: 048
     Dates: start: 20060201
  2. KEPPRA [Concomitant]
  3. TOPAMAX [Concomitant]
  4. PROCARDIA [Concomitant]
  5. CEFTIN [Concomitant]
  6. LEVAQUIN [Concomitant]
  7. PRILOSEC [Concomitant]

REACTIONS (3)
  - DRY MOUTH [None]
  - DYSGEUSIA [None]
  - OEDEMA PERIPHERAL [None]
